FAERS Safety Report 8784141 (Version 2)
Quarter: 2012Q4

REPORT INFORMATION
  Report Type: 
  Country: JP (occurrence: JP)
  Receive Date: 20120913
  Receipt Date: 20121212
  Transmission Date: 20130627
  Serious: Yes (Hospitalization)
  Sender: FDA-Public Use
  Company Number: JP-009507513-2012SP033049

PATIENT
  Age: 79 Year
  Sex: Female
  Weight: 59 kg

DRUGS (17)
  1. TEMODAL [Suspect]
     Indication: GLIOBLASTOMA MULTIFORME
     Dosage: 120 mg, qd
     Route: 048
     Dates: start: 20081104, end: 20081217
  2. TEMODAL [Suspect]
     Dosage: 160 mg, qd
     Route: 048
     Dates: start: 20080528, end: 20080601
  3. TEMODAL [Suspect]
     Dosage: 220 mg, qd
     Route: 048
     Dates: start: 20120625, end: 20120629
  4. TEMODAL [Suspect]
     Dosage: 220 mg, qd
     Route: 048
     Dates: start: 20080723, end: 20080727
  5. TEMODAL [Suspect]
     Dosage: 220 mg, qd
     Route: 048
     Dates: start: 20080820, end: 20080824
  6. TEMODAL [Suspect]
     Dosage: 300 mg, qd
     Route: 048
     Dates: start: 20080917, end: 20080921
  7. TEMODAL [Suspect]
     Dosage: 300 mg, qd
     Route: 048
     Dates: start: 20081015, end: 20081019
  8. TEMODAL [Suspect]
     Dosage: 300 mg, qd
     Route: 048
     Dates: start: 20081112, end: 20081116
  9. TEMODAL [Suspect]
     Dosage: 300 mg, qd
     Route: 048
     Dates: start: 20081210, end: 20081214
  10. TEMODAL [Suspect]
     Dosage: 300 mg, qd
     Route: 048
     Dates: start: 20090107, end: 20090111
  11. TEMODAL [Suspect]
     Dosage: 300 mg, qd
     Route: 048
     Dates: start: 20090204, end: 20090208
  12. TEMODAL [Suspect]
     Dosage: 300 mg, qd
     Route: 048
     Dates: start: 20090304, end: 20090308
  13. TEMODAL [Suspect]
     Dosage: 300 mg, qd
     Route: 048
     Dates: start: 20090401, end: 20090405
  14. AMLODIN OD [Concomitant]
     Indication: HYPERTENSION
     Dosage: 5 mg, UNK; divided dose frequency unknown
     Route: 048
     Dates: end: 20110707
  15. TENORMIN [Concomitant]
     Indication: HYPERTENSION
     Dosage: 25 mg, UNK; divided dose frequency unknown
     Route: 048
     Dates: end: 20110707
  16. CEREKINON [Concomitant]
     Indication: DEPRESSION
     Dosage: 300 mg, UNK; divided dose frequency unknown
     Route: 048
     Dates: start: 20090123, end: 20110707
  17. BENZALIN [Concomitant]
     Indication: INSOMNIA
     Dosage: 2 mg, UNK; divided dose frequency unknown
     Route: 048
     Dates: start: 20101108, end: 20110707

REACTIONS (1)
  - Cerebral infarction [Recovered/Resolved]
